FAERS Safety Report 25345778 (Version 1)
Quarter: 2025Q2

REPORT INFORMATION
  Report Type: Spontaneous
  Country: JP (occurrence: JP)
  Receive Date: 20250522
  Receipt Date: 20250522
  Transmission Date: 20250716
  Serious: Yes (Other)
  Sender: MERCK SHARP & DOHME LLC
  Company Number: JP-009507513-2287579

PATIENT
  Age: 7 Decade
  Sex: Female

DRUGS (2)
  1. KEYTRUDA [Suspect]
     Active Substance: PEMBROLIZUMAB
     Indication: Endometrial cancer
  2. LENVATINIB [Suspect]
     Active Substance: LENVATINIB
     Indication: Endometrial cancer

REACTIONS (7)
  - Neuropathy peripheral [Unknown]
  - Hypothyroidism [Unknown]
  - Hypertension [Unknown]
  - Malaise [Unknown]
  - Diarrhoea [Unknown]
  - Platelet count decreased [Unknown]
  - Immune-mediated hepatitis [Unknown]
